FAERS Safety Report 21502123 (Version 1)
Quarter: 2022Q4

REPORT INFORMATION
  Report Type: Other
  Country: JP (occurrence: JP)
  Receive Date: 20221025
  Receipt Date: 20221025
  Transmission Date: 20230112
  Serious: Yes (Other)
  Sender: FDA-Public Use
  Company Number: JP-ALVOGEN-2022088495

PATIENT
  Age: 18 Year
  Sex: Male

DRUGS (11)
  1. DOXORUBICIN [Suspect]
     Active Substance: DOXORUBICIN
     Indication: Sarcoma metastatic
     Dates: start: 2021
  2. DOXORUBICIN [Suspect]
     Active Substance: DOXORUBICIN
     Indication: Sarcoma metastatic
     Dosage: REDUCTION IN THE CHEMOTHERAPY DOSE RECEIVED FOUR CYCLES
     Dates: end: 202105
  3. DOXORUBICIN [Suspect]
     Active Substance: DOXORUBICIN
     Indication: Sarcoma metastatic
     Dosage: ADDITIONAL TWO CYCLES OF ?CHEMOTHERAPY.
  4. IFOSFAMIDE [Suspect]
     Active Substance: IFOSFAMIDE
     Indication: Sarcoma metastatic
     Dates: start: 2021
  5. IFOSFAMIDE [Suspect]
     Active Substance: IFOSFAMIDE
     Indication: Sarcoma metastatic
     Dosage: REDUCTION IN THE CHEMOTHERAPY DOSE?RECEIVED FOUR CYCLES
     Dates: end: 202105
  6. IFOSFAMIDE [Suspect]
     Active Substance: IFOSFAMIDE
     Indication: Sarcoma metastatic
     Dosage: ADDITIONAL TWO CYCLES OF ?CHEMOTHERAPY
  7. DABRAFENIB [Concomitant]
     Active Substance: DABRAFENIB
     Dosage: 300MG TWICE DAILY
     Dates: start: 202106
  8. DABRAFENIB [Concomitant]
     Active Substance: DABRAFENIB
     Dosage: DOSE WAS REDUCED TO 200MG TWICE DAILY
  9. DABRAFENIB [Concomitant]
     Active Substance: DABRAFENIB
     Dosage: DOSE WAS REDUCED TO 100MG TWICE DAILY
  10. TRAMETINIB [Concomitant]
     Active Substance: TRAMETINIB
     Dosage: ONCE A DAY
     Dates: start: 202106
  11. TRAMETINIB [Concomitant]
     Active Substance: TRAMETINIB
     Dosage: DOSE REDUCED AT 1.5 MG ONCE A DAY

REACTIONS (6)
  - Febrile neutropenia [Unknown]
  - Paraplegia [Unknown]
  - Diplopia [Unknown]
  - Neutropenia [Unknown]
  - Haematuria [Unknown]
  - Decreased appetite [Unknown]

NARRATIVE: CASE EVENT DATE: 20210101
